FAERS Safety Report 15379656 (Version 2)
Quarter: 2018Q4

REPORT INFORMATION
  Report Type: Spontaneous
  Country: US (occurrence: US)
  Receive Date: 20180913
  Receipt Date: 20181005
  Transmission Date: 20190204
  Serious: Yes (Life-Threatening, Other)
  Sender: FDA-Public Use
  Company Number: US-BAYER-2018-168886

PATIENT
  Age: 23 Year
  Sex: Female
  Weight: 58.96 kg

DRUGS (1)
  1. BAYER ASPIRIN [Suspect]
     Active Substance: ASPIRIN
     Indication: PAIN
     Dosage: 2 DF, UNK
     Route: 048

REACTIONS (6)
  - Pruritus allergic [Unknown]
  - Hot flush [Unknown]
  - Lip swelling [Unknown]
  - Respiratory arrest [Unknown]
  - Drug hypersensitivity [Unknown]
  - Eye swelling [Unknown]
